FAERS Safety Report 19036615 (Version 1)
Quarter: 2021Q1

REPORT INFORMATION
  Report Type: Spontaneous
  Country: US (occurrence: US)
  Receive Date: 20210221
  Receipt Date: 20210221
  Transmission Date: 20210420
  Serious: Yes (Other)
  Sender: FDA-Public Use
  Company Number: None

PATIENT
  Age: 41 Year
  Sex: Female

DRUGS (1)
  1. COOLING HEADACHE PADS (MENTHOL) [Suspect]
     Active Substance: MENTHOL
     Indication: MIGRAINE
     Dosage: ?          QUANTITY:3 3;?
     Route: 062
     Dates: start: 20210219, end: 20210219

REACTIONS (5)
  - Migraine [None]
  - Thermal burn [None]
  - Skin exfoliation [None]
  - Paradoxical drug reaction [None]
  - Application site burn [None]

NARRATIVE: CASE EVENT DATE: 20210219
